FAERS Safety Report 7081424-3 (Version None)
Quarter: 2010Q4

REPORT INFORMATION
  Report Type: 
  Country: None (occurrence: None)
  Receive Date: 20101103
  Receipt Date: 20101014
  Transmission Date: 20110411
  Serious: Yes (Death)
  Sender: FDA-Public Use
  Company Number: US-AMGEN-USASP2010001880

PATIENT

DRUGS (13)
  1. NEUPOGEN [Suspect]
  2. HYDROCHLOROTHIAZIDE [Concomitant]
  3. LABETALOL HCL [Concomitant]
  4. VALSARTAN [Concomitant]
  5. ACYCLOVIR [Concomitant]
  6. CEFEPIME [Concomitant]
  7. METRONIDAZOLE [Concomitant]
  8. VORICONAZOLE [Concomitant]
  9. VANCOMYCIN [Concomitant]
  10. MICAFUNGIN [Concomitant]
  11. ALLOPURINOL [Concomitant]
  12. DEXAMETHASONE [Concomitant]
  13. AZITHROMYCIN [Concomitant]

REACTIONS (1)
  - SEPSIS [None]
